FAERS Safety Report 8960294 (Version 2)
Quarter: 2013Q1

REPORT INFORMATION
  Report Type: Spontaneous
  Country: US (occurrence: US)
  Receive Date: 20121211
  Receipt Date: 20130111
  Transmission Date: 20140127
  Serious: Yes (Other)
  Sender: FDA-Public Use
  Company Number: US-FRI-1000040797

PATIENT
  Age: 52 Year
  Sex: Female
  Weight: 50 kg

DRUGS (5)
  1. VIIBRYD [Suspect]
     Indication: DEPRESSION
     Dosage: 10 MG
     Route: 048
     Dates: start: 20121118, end: 20121124
  2. VIIBRYD [Suspect]
     Dosage: 20 MG
     Route: 048
     Dates: start: 20121125, end: 20121201
  3. VIIBRYD [Suspect]
     Indication: DEPRESSION
     Dosage: 40 MG
     Route: 048
     Dates: start: 20121202, end: 20121202
  4. EFFEXOR [Suspect]
     Indication: DEPRESSION
     Dosage: 37.5 MG
     Route: 048
     Dates: start: 20121206
  5. WELLBUTRIN [Concomitant]
     Indication: DEPRESSION
     Dosage: 300 MG

REACTIONS (3)
  - Anaphylactic reaction [Recovered/Resolved]
  - Hyperhidrosis [Recovered/Resolved]
  - Dizziness [Recovered/Resolved]
